FAERS Safety Report 5805036-1 (Version None)
Quarter: 2008Q3

REPORT INFORMATION
  Report Type: 
  Country: None (occurrence: None)
  Receive Date: 20080709
  Receipt Date: 20080704
  Transmission Date: 20090109
  Serious: Yes (Death)
  Sender: FDA-Public Use
  Company Number: ES-BOEHRINGER INGELHEIM GMBH, GERMANY-2008-ES-00601ES

PATIENT
  Age: 79 Year
  Sex: Male

DRUGS (5)
  1. MIRAPEXIN [Suspect]
     Dosage: 1,59 MG (0,18 MG AND 0,7 MG STRENGTH)
     Route: 048
     Dates: start: 20070622
  2. EXELON [Suspect]
     Route: 048
     Dates: start: 20050728
  3. MADOPAR RETARD [Suspect]
     Route: 048
     Dates: start: 20050728
  4. SINEMET [Suspect]
     Dosage: LEVODOPA 25+CARBIDOPA 100
     Route: 048
     Dates: start: 20060425
  5. STALEVO 100 [Suspect]
     Dosage: 50MG/12,5 MG/200 MG
     Route: 048
     Dates: start: 20070510

REACTIONS (1)
  - UPPER GASTROINTESTINAL HAEMORRHAGE [None]
